FAERS Safety Report 8265518-2 (Version None)
Quarter: 2012Q2

REPORT INFORMATION
  Report Type: 
  Country: None (occurrence: None)
  Receive Date: 20120404
  Receipt Date: 20120320
  Transmission Date: 20120825
  Serious: Yes (Hospitalization)
  Sender: FDA-Public Use
  Company Number: 2012SGN00042

PATIENT
  Age: 71 Year
  Sex: Female
  Weight: 112.9 kg

DRUGS (17)
  1. BRENTUXIMAB VEDOTIN (BRENTUXIMAB VEDOTIN) INJECTION [Suspect]
     Indication: SMALL CELL LUNG CANCER STAGE UNSPECIFIED
     Dosage: 1.8 MG/KG, Q21D, INTRAVENOUS
     Route: 042
     Dates: start: 20120116, end: 20120116
  2. LEVOTHYROXINE SODIUM [Concomitant]
  3. ASPIRIN [Concomitant]
  4. CLARITIN [Concomitant]
  5. COREG [Concomitant]
  6. FISH OIL (FISH OIL) [Concomitant]
  7. LANTUS [Concomitant]
  8. NOVOLOG [Concomitant]
  9. CALCIUM (CALCIUM GLUBIONATE) [Concomitant]
  10. COQ10 (UBIDECARENONE) [Concomitant]
  11. LASIX [Concomitant]
  12. LIPITOR [Concomitant]
  13. GLIMEPIRIDE [Concomitant]
  14. JANUVIA [Concomitant]
  15. METFORMIN HYDROCHLORIDE [Concomitant]
  16. VITAMIN D [Concomitant]
  17. HYZAAR [Concomitant]

REACTIONS (7)
  - DYSPNOEA [None]
  - EMOTIONAL DISTRESS [None]
  - ABDOMINAL DISTENSION [None]
  - HYPOXIA [None]
  - HAEMOGLOBIN DECREASED [None]
  - FLUID RETENTION [None]
  - OEDEMA PERIPHERAL [None]
